FAERS Safety Report 5679301-5 (Version None)
Quarter: 2008Q1

REPORT INFORMATION
  Report Type: 
  Country: None (occurrence: None)
  Receive Date: 20080325
  Receipt Date: 20080313
  Transmission Date: 20080703
  Serious: Yes (Hospitalization, Other)
  Sender: FDA-Public Use
  Company Number: HQWYE156121OCT05

PATIENT
  Sex: Female

DRUGS (10)
  1. PANTOPRAZOLE SODIUM [Suspect]
     Indication: DYSPEPSIA
     Route: 048
     Dates: end: 20050419
  2. LIORESAL [Concomitant]
  3. MARINOL [Concomitant]
  4. CUCURBITA [Concomitant]
     Dosage: UNKNOWN
     Route: 065
  5. SPASMOLYT [Concomitant]
     Dosage: UNKNOWN
     Route: 065
  6. ALPRAZOLAM [Concomitant]
     Dosage: UNKNOWN
     Route: 065
  7. VITAMINS [Concomitant]
     Dosage: UNKNOWN
     Route: 065
  8. CLOBETASOL PROPIONATE [Concomitant]
     Dosage: UNKNOWN
     Route: 065
  9. NEXIUM [Suspect]
     Indication: DYSPEPSIA
     Dates: end: 20050518
  10. ERCOQUIN [Concomitant]
     Dosage: ^DF^
     Dates: start: 20050518, end: 20050530

REACTIONS (2)
  - ALANINE AMINOTRANSFERASE INCREASED [None]
  - CUTANEOUS LUPUS ERYTHEMATOSUS [None]
